FAERS Safety Report 7980817-7 (Version None)
Quarter: 2011Q4

REPORT INFORMATION
  Report Type: 
  Country: None (occurrence: None)
  Receive Date: 20111214
  Receipt Date: 20111122
  Transmission Date: 20120403
  Serious: Yes (Hospitalization)
  Sender: FDA-Public Use
  Company Number: DE-ROCHE-1008196

PATIENT
  Sex: Male
  Weight: 73 kg

DRUGS (4)
  1. CAPTOPRIL [Concomitant]
  2. ATACAND HCT [Concomitant]
     Dosage: 8/12.5 MG
  3. MABTHERA [Suspect]
     Indication: B-CELL LYMPHOMA
     Route: 042
     Dates: start: 20110927, end: 20111025
  4. SIMVASTATIN [Concomitant]

REACTIONS (5)
  - FALL [None]
  - PLATELET COUNT DECREASED [None]
  - ABDOMINAL PAIN [None]
  - VERTIGO [None]
  - BLOOD CREATININE INCREASED [None]
